FAERS Safety Report 6570266-0 (Version None)
Quarter: 2010Q1

REPORT INFORMATION
  Report Type: 
  Country: None (occurrence: None)
  Receive Date: 20100202
  Receipt Date: 20100202
  Transmission Date: 20100710
  Serious: Yes (Death, Life-Threatening, Hospitalization)
  Sender: FDA-Public Use
  Company Number: None

PATIENT
  Sex: Male
  Weight: 77.3 kg

DRUGS (2)
  1. HALOPERIDOL [Suspect]
     Indication: AGITATION
     Dosage: 5MG 1 IVP - OVER 1 MINUTE
     Dates: start: 20091105
  2. XYREM [Suspect]
     Indication: SLEEP DISORDER
     Dosage: 5G 2 ORAL
     Route: 048
     Dates: start: 20040101, end: 20090101

REACTIONS (3)
  - CONTRAINDICATION TO MEDICAL TREATMENT [None]
  - NEUROLEPTIC MALIGNANT SYNDROME [None]
  - NEUROTOXICITY [None]
